FAERS Safety Report 24184531 (Version 2)
Quarter: 2024Q4

REPORT INFORMATION
  Report Type: Spontaneous
  Country: JP (occurrence: JP)
  Receive Date: 20240807
  Receipt Date: 20241129
  Transmission Date: 20250115
  Serious: Yes (Death, Other)
  Sender: MERCK
  Company Number: JP-MSD-M2024-30372

PATIENT
  Age: 79 Year
  Sex: Female

DRUGS (1)
  1. ZERBAXA [Suspect]
     Active Substance: CEFTOLOZANE SULFATE\TAZOBACTAM SODIUM
     Indication: Pneumonia
     Dosage: 3000 MILLIGRAM, TID
     Route: 041
     Dates: start: 20240728, end: 20240730

REACTIONS (1)
  - Death [Fatal]

NARRATIVE: CASE EVENT DATE: 20240731
